FAERS Safety Report 5416075-7 (Version None)
Quarter: 2007Q3

REPORT INFORMATION
  Report Type: 
  Country: None (occurrence: None)
  Receive Date: 20070815
  Receipt Date: 20070810
  Transmission Date: 20080115
  Serious: Yes (Death, Hospitalization)
  Sender: FDA-Public Use
  Company Number: PR-ABBOTT-07P-131-0377587-00

PATIENT
  Age: 72 Year
  Sex: Male

DRUGS (6)
  1. ZEMPLAR [Suspect]
     Indication: RENAL FAILURE
     Route: 048
     Dates: start: 20070507, end: 20070712
  2. ZEMPLAR [Suspect]
     Route: 048
     Dates: start: 20060901, end: 20070507
  3. CADUET [Concomitant]
     Indication: DIURETIC THERAPY
     Route: 048
  4. CARVEDILOL [Concomitant]
     Indication: CARDIAC FAILURE CONGESTIVE
     Route: 048
  5. IMDUR [Concomitant]
     Indication: DRUG USE FOR UNKNOWN INDICATION
     Dosage: 30
     Route: 048
  6. LOSARTAN POTASSIUM [Concomitant]
     Indication: DIURETIC THERAPY
     Route: 048

REACTIONS (4)
  - ACUTE MYOCARDIAL INFARCTION [None]
  - FALL [None]
  - HYPERCALCAEMIA [None]
  - SUBDURAL HAEMATOMA [None]
